FAERS Safety Report 5223149-2 (Version None)
Quarter: 2007Q1

REPORT INFORMATION
  Report Type: 
  Country: None (occurrence: None)
  Receive Date: 20070125
  Receipt Date: 20070109
  Transmission Date: 20070707
  Serious: Yes (Life-Threatening, Hospitalization)
  Sender: FDA-Public Use
  Company Number: DSA_29221_2007

PATIENT
  Age: 28 Year
  Sex: Female

DRUGS (3)
  1. TAVOR /00273201/ [Suspect]
     Dosage: DF ONCE PO
     Route: 048
     Dates: start: 20070108, end: 20070108
  2. INSULIN [Suspect]
     Dosage: 1200 IU ONCE SC
     Route: 058
     Dates: start: 20070108, end: 20070108
  3. PROTAPHANE MC /00030504/ [Suspect]
     Dosage: 300 IU ONCE SC
     Route: 058
     Dates: start: 20070108, end: 20070108

REACTIONS (3)
  - HYPOGLYCAEMIA [None]
  - MULTIPLE DRUG OVERDOSE [None]
  - SUICIDE ATTEMPT [None]
